FAERS Safety Report 14183479 (Version 5)
Quarter: 2018Q1

REPORT INFORMATION
  Report Type: Report from Study
  Country: US (occurrence: US)
  Receive Date: 20171113
  Receipt Date: 20180223
  Transmission Date: 20180508
  Serious: Yes (Disabling)
  Sender: FDA-Public Use
  Company Number: US-GILEAD-2017-0303815

PATIENT
  Age: 72 Year
  Sex: Female

DRUGS (9)
  1. TYLENOL [Concomitant]
     Active Substance: ACETAMINOPHEN
     Indication: HEADACHE
     Dosage: 1000 MG, PRN
     Route: 048
     Dates: start: 201708
  2. ATENOLOL. [Concomitant]
     Active Substance: ATENOLOL
     Dosage: UNKNOWN
     Dates: end: 20180206
  3. ATORVASTATIN [Concomitant]
     Active Substance: ATORVASTATIN
     Dosage: 40MG BY MOUTH DAILY
     Dates: start: 20180206
  4. METOPROLOL. [Concomitant]
     Active Substance: METOPROLOL
     Dosage: 25MG BY MOUTH TWICE DAILY
     Dates: start: 20180206
  5. LOSARTAN. [Concomitant]
     Active Substance: LOSARTAN
     Dosage: 25MG BY MOUTH ONCE DAILY
     Dates: start: 20180206
  6. IDELALISIB [Suspect]
     Active Substance: IDELALISIB
     Indication: CHRONIC LYMPHOCYTIC LEUKAEMIA
     Dosage: 150 MG, BID
     Route: 048
     Dates: start: 20161217
  7. TRAMADOL. [Concomitant]
     Active Substance: TRAMADOL
     Indication: HEADACHE
     Dosage: 500 MG, PRN
     Route: 048
     Dates: start: 201708
  8. ALLOPURINOL. [Concomitant]
     Active Substance: ALLOPURINOL
     Indication: PRODUCT USED FOR UNKNOWN INDICATION
     Dosage: UNK
     Route: 065
  9. ALLOPURINOL. [Concomitant]
     Active Substance: ALLOPURINOL
     Dosage: UNK
     Route: 065

REACTIONS (5)
  - Blood pressure abnormal [Not Recovered/Not Resolved]
  - Blood count abnormal [Not Recovered/Not Resolved]
  - Memory impairment [Not Recovered/Not Resolved]
  - Headache [Not Recovered/Not Resolved]
  - Blood pressure increased [Unknown]

NARRATIVE: CASE EVENT DATE: 201708
